FAERS Safety Report 17849418 (Version 9)
Quarter: 2022Q4

REPORT INFORMATION
  Report Type: Report from Study
  Country: JP (occurrence: JP)
  Receive Date: 20200602
  Receipt Date: 20221223
  Transmission Date: 20230112
  Serious: Yes (Hospitalization, Other)
  Sender: FDA-Public Use
  Company Number: JP-ONO-2020JP012757

PATIENT
  Age: 82 Year
  Sex: Female
  Weight: 41.5 kg

DRUGS (27)
  1. ETELCALCETIDE [Suspect]
     Active Substance: ETELCALCETIDE
     Indication: Hyperparathyroidism secondary
     Dosage: 5 MILLIGRAM
     Route: 065
     Dates: start: 20180816, end: 20180904
  2. ETELCALCETIDE [Suspect]
     Active Substance: ETELCALCETIDE
     Dosage: 2.5 MILLIGRAM
     Route: 065
     Dates: start: 20180906, end: 20190827
  3. ETELCALCETIDE [Suspect]
     Active Substance: ETELCALCETIDE
     Dosage: 2.5 MILLIGRAM, Q84H
     Route: 065
     Dates: start: 20190831, end: 20210626
  4. ETELCALCETIDE [Suspect]
     Active Substance: ETELCALCETIDE
     Dosage: 2.5 MILLIGRAM, Q84H
     Route: 065
     Dates: start: 20210629, end: 20211030
  5. ETELCALCETIDE [Suspect]
     Active Substance: ETELCALCETIDE
     Dosage: 2.5 MILLIGRAM, Q84H
     Route: 065
     Dates: start: 20211102, end: 20220215
  6. ETELCALCETIDE [Suspect]
     Active Substance: ETELCALCETIDE
     Dosage: 2.5 MILLIGRAM, QWK
     Route: 065
     Dates: start: 20220222, end: 20220222
  7. ETELCALCETIDE [Suspect]
     Active Substance: ETELCALCETIDE
     Dosage: 2.5 MILLIGRAM, QWK
     Route: 065
     Dates: start: 20220322, end: 20220823
  8. ETELCALCETIDE [Suspect]
     Active Substance: ETELCALCETIDE
     Dosage: 2.5 MILLIGRAM, QWK
     Route: 065
     Dates: start: 20220920
  9. DARBEPOETIN ALFA [Concomitant]
     Active Substance: DARBEPOETIN ALFA
     Dosage: 5 MICROGRAM, QWK
     Route: 065
     Dates: start: 20190912, end: 20200618
  10. EPOETIN ALFA [Concomitant]
     Active Substance: ERYTHROPOIETIN
     Dosage: 2250 INTERNATIONAL UNIT, QWK
     Route: 065
     Dates: start: 20200623, end: 20200728
  11. EPOETIN ALFA [Concomitant]
     Active Substance: ERYTHROPOIETIN
     Dosage: 3000 INTERNATIONAL UNIT, QWK
     Route: 065
     Dates: start: 20200730, end: 20200820
  12. EPOETIN ALFA [Concomitant]
     Active Substance: ERYTHROPOIETIN
     Dosage: 4500 INTERNATIONAL UNIT, QWK
     Route: 065
     Dates: start: 20200822, end: 20210424
  13. EPOETIN ALFA [Concomitant]
     Active Substance: ERYTHROPOIETIN
     Dosage: 2250 INTERNATIONAL UNIT, QWK
     Route: 065
     Dates: start: 20210427, end: 20210626
  14. EPOETIN ALFA [Concomitant]
     Active Substance: ERYTHROPOIETIN
     Dosage: 3000 INTERNATIONAL UNIT, QWK
     Route: 065
     Dates: start: 20210629, end: 20211030
  15. EPOETIN ALFA [Concomitant]
     Active Substance: ERYTHROPOIETIN
     Dosage: 2250 INTERNATIONAL UNIT, QWK
     Route: 065
     Dates: start: 20211102, end: 20220217
  16. EPOETIN ALFA [Concomitant]
     Active Substance: ERYTHROPOIETIN
     Dosage: 3750 INTERNATIONAL UNIT, QWK
     Route: 065
     Dates: start: 20220219
  17. ALFAROL [Concomitant]
     Active Substance: ALFACALCIDOL
     Dosage: 0.25 MICROGRAM, QD
     Route: 048
     Dates: end: 20181011
  18. ALFAROL [Concomitant]
     Active Substance: ALFACALCIDOL
     Dosage: 0.5 MICROGRAM, QD
     Route: 048
     Dates: start: 20181012, end: 20200527
  19. ALFAROL [Concomitant]
     Active Substance: ALFACALCIDOL
     Dosage: 0.25 MICROGRAM, QD
     Route: 048
     Dates: start: 20200528, end: 20210423
  20. ALFAROL [Concomitant]
     Active Substance: ALFACALCIDOL
     Dosage: 0.5 MICROGRAM, QD
     Route: 048
     Dates: start: 20210424, end: 20210526
  21. SUCROFERRIC OXYHYDROXIDE [Concomitant]
     Active Substance: SUCROFERRIC OXYHYDROXIDE
     Dosage: 500 MILLIGRAM, QD
     Route: 048
     Dates: end: 20190109
  22. MIRCERA [Concomitant]
     Active Substance: METHOXY POLYETHYLENE GLYCOL-EPOETIN BETA
     Dosage: 25 MICROGRAM, Q4WK
     Route: 065
     Dates: end: 20181204
  23. MIRCERA [Concomitant]
     Active Substance: METHOXY POLYETHYLENE GLYCOL-EPOETIN BETA
     Dosage: 50 MICROGRAM, Q4WK
     Route: 065
     Dates: start: 20181220, end: 20190214
  24. MIRCERA [Concomitant]
     Active Substance: METHOXY POLYETHYLENE GLYCOL-EPOETIN BETA
     Dosage: 37.5 MICROGRAM, Q4WK
     Route: 065
     Dates: start: 20190228, end: 20190829
  25. FERRIC CITRATE ANHYDROUS [Concomitant]
     Active Substance: FERRIC CITRATE ANHYDROUS
     Dosage: 500 MILLIGRAM, QD
     Route: 065
     Dates: start: 20190110, end: 20200902
  26. FERRIC CITRATE ANHYDROUS [Concomitant]
     Active Substance: FERRIC CITRATE ANHYDROUS
     Dosage: 500 MILLIGRAM, QD
     Route: 065
     Dates: start: 20200910, end: 20210916
  27. FERRIC CITRATE ANHYDROUS [Concomitant]
     Active Substance: FERRIC CITRATE ANHYDROUS
     Dosage: 1000 MILLIGRAM, QD
     Route: 065
     Dates: start: 20210917

REACTIONS (3)
  - Cerebral infarction [Recovered/Resolved with Sequelae]
  - Spinal compression fracture [Recovered/Resolved]
  - Osteoporosis [Recovering/Resolving]

NARRATIVE: CASE EVENT DATE: 20200512
